FAERS Safety Report 6945872-1 (Version None)
Quarter: 2010Q3

REPORT INFORMATION
  Report Type: 
  Country: None (occurrence: None)
  Receive Date: 20100827
  Receipt Date: 20100816
  Transmission Date: 20110219
  Serious: Yes (Other)
  Sender: FDA-Public Use
  Company Number: PHHY2010JP51488

PATIENT
  Age: 24 Year
  Sex: Female

DRUGS (3)
  1. CYCLOSPORINE [Suspect]
     Indication: STILL'S DISEASE ADULT ONSET
  2. METHOTREXATE [Concomitant]
     Indication: STILL'S DISEASE ADULT ONSET
  3. NSAID'S [Concomitant]
     Dosage: UNK

REACTIONS (6)
  - HAPTOGLOBIN DECREASED [None]
  - PLASMAPHERESIS [None]
  - RED BLOOD CELL ABNORMALITY [None]
  - STILL'S DISEASE ADULT ONSET [None]
  - THROMBOCYTOSIS [None]
  - THROMBOTIC MICROANGIOPATHY [None]
